FAERS Safety Report 11071617 (Version 1)
Quarter: 2015Q2

REPORT INFORMATION
  Report Type: Spontaneous
  Country: TW (occurrence: None)
  Receive Date: 20150424
  Receipt Date: 20150424
  Transmission Date: 20150821
  Serious: Yes (Hospitalization, Other)
  Sender: FDA-Public Use
  Company Number: TW-ZYDUS-007681

PATIENT
  Age: 76 Year
  Sex: Female

DRUGS (3)
  1. AZATHIOPRINE (AZATHIOPRINE) [Suspect]
     Active Substance: AZATHIOPRINE
     Indication: PRODUCT USED FOR UNKNOWN INDICATION
     Dosage: 100.00-MG-1.0DAYS  / ORAL
     Route: 048
  2. THYROXINE [Concomitant]
     Active Substance: LEVOTHYROXINE
  3. CORTICOSTEROIDS(CORTICOSTEROIDS) [Concomitant]

REACTIONS (4)
  - Hepatitis acute [None]
  - Respiratory distress [None]
  - Lethargy [None]
  - Dizziness [None]
